FAERS Safety Report 15274011 (Version 1)
Quarter: 2018Q3

REPORT INFORMATION
  Report Type: Spontaneous
  Country: FR (occurrence: FR)
  Receive Date: 20180814
  Receipt Date: 20180814
  Transmission Date: 20181010
  Serious: Yes (Hospitalization)
  Sender: FDA-Public Use
  Company Number: FR-ROCHE-2169049

PATIENT
  Age: 82 Year
  Sex: Male

DRUGS (8)
  1. ESBRIET [Suspect]
     Active Substance: PIRFENIDONE
     Indication: PULMONARY FIBROSIS
     Dosage: ON 20/JUN/2018, RECEIVED MOST RECENT DOSE OF PIRFENIDONE.
     Route: 048
     Dates: start: 20180605
  2. PREVISCAN (FRANCE) [Concomitant]
     Active Substance: FLUINDIONE
     Indication: CARDIOMYOPATHY
     Route: 048
  3. AVODART [Concomitant]
     Active Substance: DUTASTERIDE
     Indication: BENIGN PROSTATIC HYPERPLASIA
     Route: 048
  4. TENORMINE [Concomitant]
     Active Substance: ATENOLOL
     Indication: TACHYCARDIA
     Route: 048
     Dates: end: 20180710
  5. ENANTONE LP [Concomitant]
     Active Substance: LEUPROLIDE ACETATE
     Route: 058
  6. MONO TILDIEM [Concomitant]
     Active Substance: DILTIAZEM HYDROCHLORIDE
     Indication: HYPERTENSION
     Route: 048
     Dates: end: 20180710
  7. EUPANTOL [Concomitant]
     Active Substance: PANTOPRAZOLE SODIUM
     Indication: PRODUCT USED FOR UNKNOWN INDICATION
     Route: 048
  8. TADENAN [Concomitant]
     Active Substance: PYGEUM
     Indication: MICTURITION DISORDER
     Route: 048

REACTIONS (1)
  - Urticaria [Recovered/Resolved]

NARRATIVE: CASE EVENT DATE: 20180619
